FAERS Safety Report 16711399 (Version 1)
Quarter: 2019Q3

REPORT INFORMATION
  Report Type: Spontaneous
  Country: US (occurrence: US)
  Receive Date: 20190816
  Receipt Date: 20190816
  Transmission Date: 20191004
  Serious: No
  Sender: FDA-Public Use
  Company Number: US-SA-2019SA219923

PATIENT
  Age: 35 Year
  Sex: Female

DRUGS (2)
  1. DUPIXENT [Suspect]
     Active Substance: DUPILUMAB
     Indication: DERMATITIS ATOPIC
     Dosage: UNK UNK, 1X
     Dates: start: 20190723, end: 20190723
  2. DUPIXENT [Suspect]
     Active Substance: DUPILUMAB
     Dosage: UNK
     Dates: start: 20190730, end: 20190802

REACTIONS (6)
  - Injection site warmth [Unknown]
  - Product use issue [Unknown]
  - Injection site swelling [Unknown]
  - Eczema [Unknown]
  - Injection site rash [Unknown]
  - Limb discomfort [Unknown]

NARRATIVE: CASE EVENT DATE: 2019
